FAERS Safety Report 11113159 (Version 1)
Quarter: 2015Q2

REPORT INFORMATION
  Report Type: Spontaneous
  Country: US (occurrence: US)
  Receive Date: 20150514
  Receipt Date: 20150514
  Transmission Date: 20150821
  Serious: Yes (Other)
  Sender: FDA-Public Use
  Company Number: US-DSJP-DSU-2015-114256

PATIENT

DRUGS (1)
  1. AZOR [Suspect]
     Active Substance: AMLODIPINE BESYLATE\OLMESARTAN MEDOXOMIL
     Indication: MALIGNANT HYPERTENSION
     Dosage: 10/40 MG, QD
     Route: 048

REACTIONS (9)
  - Neuropathy peripheral [Unknown]
  - Carpal tunnel syndrome [Unknown]
  - Muscle strain [Unknown]
  - Depression [Unknown]
  - Ligament sprain [Unknown]
  - Systemic lupus erythematosus [Unknown]
  - Back pain [Unknown]
  - Menopause [Unknown]
  - Cardiac murmur functional [Unknown]
